FAERS Safety Report 7842918-3 (Version None)
Quarter: 2011Q4

REPORT INFORMATION
  Report Type: 
  Country: None (occurrence: None)
  Receive Date: 20111025
  Receipt Date: 20111012
  Transmission Date: 20120403
  Serious: Yes (Hospitalization, Other)
  Sender: FDA-Public Use
  Company Number: US-BAYER-2011-009720

PATIENT
  Sex: Female
  Weight: 66 kg

DRUGS (6)
  1. YASMIN [Suspect]
     Indication: ACNE
     Dosage: UNK
     Dates: start: 20010101, end: 20020101
  2. PHENERGAN HCL [Concomitant]
     Dosage: UNK
     Dates: start: 20020201
  3. VIOXX [Concomitant]
     Dosage: UNK
     Dates: start: 20020101
  4. CELEBREX [Concomitant]
     Dosage: UNK
     Dates: start: 20020201
  5. SULFAMETHOXAZOLE AND TRIMETHOPRIM [Concomitant]
     Dosage: UNK
     Dates: start: 20020201
  6. YASMIN [Suspect]
     Indication: ORAL CONTRACEPTION
     Dosage: UNK
     Dates: start: 20040101, end: 20041201

REACTIONS (8)
  - CHOLELITHIASIS [None]
  - FIBROSIS [None]
  - PANIC ATTACK [None]
  - HAEMORRHAGE [None]
  - PAIN [None]
  - INJURY [None]
  - CHOLECYSTITIS [None]
  - ANXIETY [None]
